FAERS Safety Report 19168020 (Version 1)
Quarter: 2021Q2

REPORT INFORMATION
  Report Type: Spontaneous
  Country: US (occurrence: US)
  Receive Date: 20210421
  Receipt Date: 20210421
  Transmission Date: 20210717
  Serious: Yes (Hospitalization)
  Sender: FDA-Public Use
  Company Number: None

PATIENT
  Sex: Male
  Weight: 87.4 kg

DRUGS (4)
  1. ENBREL [Suspect]
     Active Substance: ETANERCEPT
     Indication: PSORIATIC ARTHROPATHY
     Route: 058
     Dates: start: 20111201, end: 20210305
  2. FAMOTIDINE 40MG TABLET [Concomitant]
  3. AMITRIPTYLINE 25MG TABLET [Concomitant]
  4. AMLODIPINE [Concomitant]
     Active Substance: AMLODIPINE BESYLATE

REACTIONS (6)
  - Pancreatitis [None]
  - Weight decreased [None]
  - Pseudocyst [None]
  - Splenic vein thrombosis [None]
  - Cholecystectomy [None]
  - Leukocytosis [None]

NARRATIVE: CASE EVENT DATE: 20210318
